FAERS Safety Report 9563221 (Version 1)
Quarter: 2013Q3

REPORT INFORMATION
  Report Type: Spontaneous
  Country: US (occurrence: US)
  Receive Date: 20130927
  Receipt Date: 20130927
  Transmission Date: 20140515
  Serious: No
  Sender: FDA-Public Use
  Company Number: US-BRISTOL-MYERS SQUIBB COMPANY-19096528

PATIENT
  Age: 61 Year
  Sex: Male
  Weight: 157.36 kg

DRUGS (1)
  1. ONGLYZA TABS [Suspect]
     Indication: DIABETES MELLITUS

REACTIONS (2)
  - Drug administration error [Unknown]
  - Expired drug administered [Unknown]
